FAERS Safety Report 13475924 (Version 1)
Quarter: 2017Q2

REPORT INFORMATION
  Report Type: Spontaneous
  Country: US (occurrence: US)
  Receive Date: 20170425
  Receipt Date: 20170425
  Transmission Date: 20170830
  Serious: Yes (Hospitalization, Other)
  Sender: FDA-Public Use
  Company Number: US-ZYDUS-014658

PATIENT
  Age: 63 Year
  Sex: Female

DRUGS (1)
  1. ACETAZOLAMIDE. [Suspect]
     Active Substance: ACETAZOLAMIDE
     Indication: PROPHYLAXIS
     Route: 065

REACTIONS (11)
  - Eye pain [Recovered/Resolved]
  - Visual impairment [Recovered/Resolved]
  - Nausea [Recovered/Resolved]
  - Ciliary body disorder [Recovered/Resolved]
  - Anterior chamber disorder [Recovered/Resolved]
  - Intraocular pressure increased [Recovered/Resolved]
  - Angle closure glaucoma [Recovered/Resolved]
  - Vision blurred [Recovered/Resolved]
  - Corneal oedema [Recovered/Resolved]
  - Pupillary reflex impaired [Recovered/Resolved]
  - Headache [Recovered/Resolved]
